FAERS Safety Report 8439761-3 (Version None)
Quarter: 2012Q2

REPORT INFORMATION
  Report Type: 
  Country: None (occurrence: None)
  Receive Date: 20120615
  Receipt Date: 20120612
  Transmission Date: 20120825
  Serious: Yes (Hospitalization)
  Sender: FDA-Public Use
  Company Number: FR-SANOFI-AVENTIS-2011SA056509

PATIENT
  Age: 69 Year
  Sex: Male
  Weight: 74 kg

DRUGS (8)
  1. IMOVANE [Concomitant]
  2. BISOPROLOL FUMARATE [Concomitant]
     Dates: start: 20100501, end: 20110101
  3. CORDARONE [Suspect]
     Route: 048
     Dates: start: 20091001, end: 20110101
  4. BISOPROLOL FUMARATE [Concomitant]
     Dates: start: 20110120
  5. CORGARD [Concomitant]
     Dates: start: 20110701
  6. MULTAQ [Suspect]
     Route: 048
     Dates: start: 20110111, end: 20110131
  7. MULTAQ [Suspect]
     Route: 048
     Dates: start: 20110701, end: 20110808
  8. PREVISCAN [Concomitant]

REACTIONS (4)
  - EOSINOPHILIA [None]
  - DYSPNOEA [None]
  - INTERSTITIAL LUNG DISEASE [None]
  - OFF LABEL USE [None]
